FAERS Safety Report 6324319-2 (Version None)
Quarter: 2009Q3

REPORT INFORMATION
  Report Type: 
  Country: None (occurrence: None)
  Receive Date: 20090824
  Receipt Date: 20090424
  Transmission Date: 20100115
  Serious: No
  Sender: FDA-Public Use
  Company Number: US-ABBOTT-09P-163-0570018-00

PATIENT
  Age: 51 Year
  Sex: Male
  Weight: 81.72 kg

DRUGS (6)
  1. NIASPAN [Suspect]
     Indication: BLOOD CHOLESTEROL INCREASED
     Dates: start: 20081001, end: 20090201
  2. NIASPAN [Suspect]
     Dates: start: 20070101, end: 20070101
  3. ASPIRIN [Concomitant]
     Indication: PROPHYLAXIS
  4. VYTORIN [Concomitant]
     Indication: BLOOD CHOLESTEROL INCREASED
     Dosage: UNKNOWN
  5. AZMACORT [Concomitant]
     Indication: ASTHMA
     Dosage: UNKNOWN
     Route: 055
  6. PROVENTIL-HFA [Concomitant]
     Indication: ASTHMA
     Dosage: UNKNOWN
     Route: 055

REACTIONS (4)
  - ERYTHEMA [None]
  - FLUSHING [None]
  - OCULAR HYPERAEMIA [None]
  - PARAESTHESIA [None]
